FAERS Safety Report 21548438 (Version 3)
Quarter: 2023Q1

REPORT INFORMATION
  Report Type: Spontaneous
  Country: US (occurrence: US)
  Receive Date: 20221103
  Receipt Date: 20230209
  Transmission Date: 20230417
  Serious: No
  Sender: FDA-Public Use
  Company Number: US-PFIZER INC-202200586093

PATIENT
  Age: 61 Year
  Sex: Female

DRUGS (1)
  1. XELJANZ XR [Suspect]
     Active Substance: TOFACITINIB CITRATE
     Indication: Rheumatoid arthritis
     Dosage: 11 MG, 1X/DAY, TAKE 1 TABLET (11 MG) BY MOUTH ONCE DAILY. DO NOT CRUSH, CHEW OR SPLIT. SWALLOW WHOLE
     Route: 048

REACTIONS (1)
  - Malaise [Unknown]
